FAERS Safety Report 8993033 (Version 1)
Quarter: 2013Q1

REPORT INFORMATION
  Report Type: Spontaneous
  Country: US (occurrence: US)
  Receive Date: 20130102
  Receipt Date: 20130102
  Transmission Date: 20140127
  Serious: No
  Sender: FDA-Public Use
  Company Number: US-BAYER-2012-132826

PATIENT
  Sex: Male
  Weight: 90.7 kg

DRUGS (4)
  1. BETASERON [Suspect]
     Dosage: 0.3 MG, QOD
     Route: 058
  2. LANTUS [Concomitant]
     Dosage: 100 ML, UNK
  3. METFORMIN [Concomitant]
     Dosage: 850 MG, UNK
  4. IMMUNOGLOBULIN HUMAN [Concomitant]

REACTIONS (2)
  - Muscular weakness [Unknown]
  - Balance disorder [Unknown]
